FAERS Safety Report 5904446-1 (Version None)
Quarter: 2008Q4

REPORT INFORMATION
  Report Type: 
  Country: None (occurrence: None)
  Receive Date: 20081001
  Receipt Date: 20080923
  Transmission Date: 20090506
  Serious: Yes (Hospitalization, Other)
  Sender: FDA-Public Use
  Company Number: US-BAYER-200828532NA

PATIENT
  Age: 22 Year
  Sex: Female
  Weight: 102 kg

DRUGS (2)
  1. MIRENA [Suspect]
     Indication: CONTRACEPTION
     Route: 015
     Dates: start: 20080404, end: 20080428
  2. VITAMINS [Concomitant]

REACTIONS (2)
  - IUCD COMPLICATION [None]
  - IUD MIGRATION [None]
